FAERS Safety Report 9530173 (Version 1)
Quarter: 2013Q3

REPORT INFORMATION
  Report Type: Spontaneous
  Country: AU (occurrence: AU)
  Receive Date: 20130917
  Receipt Date: 20130917
  Transmission Date: 20140515
  Serious: Yes (Death, Other)
  Sender: FDA-Public Use
  Company Number: PHHY2013AU102762

PATIENT
  Age: 49 Year
  Sex: 0

DRUGS (1)
  1. LEVODOPA+CARBIDOPA [Suspect]
     Indication: PARKINSON^S DISEASE
     Dosage: 1700 MG DAILY
     Route: 048

REACTIONS (2)
  - Death [Fatal]
  - Peripheral sensorimotor neuropathy [Not Recovered/Not Resolved]
